FAERS Safety Report 7079876-8 (Version None)
Quarter: 2010Q4

REPORT INFORMATION
  Report Type: 
  Country: None (occurrence: None)
  Receive Date: 20101102
  Receipt Date: 20101025
  Transmission Date: 20110411
  Serious: Yes (Other)
  Sender: FDA-Public Use
  Company Number: US-AMGEN-USASP2010001594

PATIENT

DRUGS (1)
  1. ENBREL [Suspect]

REACTIONS (1)
  - MYOCARDIAL INFARCTION [None]
